FAERS Safety Report 10338266 (Version 3)
Quarter: 2015Q1

REPORT INFORMATION
  Report Type: Spontaneous
  Country: US (occurrence: US)
  Receive Date: 20140724
  Receipt Date: 20150206
  Transmission Date: 20150720
  Serious: No
  Sender: FDA-Public Use
  Company Number: US-PFIZER INC-2014206574

PATIENT
  Age: 48 Year
  Sex: Male
  Weight: 113.4 kg

DRUGS (2)
  1. LYRICA [Suspect]
     Active Substance: PREGABALIN
     Dosage: 450 MG, 2X/DAY (BY TAKING TWO OF 225MG IN MORNING AND TWO OF 225MG AT NIGHT)
     Route: 048
     Dates: start: 201207, end: 2013
  2. LOSARTAN [Concomitant]
     Active Substance: LOSARTAN
     Indication: HYPERTENSION
     Dosage: UNK

REACTIONS (1)
  - Pain [Unknown]

NARRATIVE: CASE EVENT DATE: 2013
